FAERS Safety Report 25869784 (Version 1)
Quarter: 2025Q3

REPORT INFORMATION
  Report Type: Spontaneous
  Country: US (occurrence: None)
  Receive Date: 20250930
  Receipt Date: 20250930
  Transmission Date: 20251020
  Serious: Yes (Hospitalization)
  Sender: FDA-CTU
  Company Number: None

PATIENT
  Sex: Female

DRUGS (2)
  1. IBRANCE [Suspect]
     Active Substance: PALBOCICLIB
     Indication: Breast cancer female
     Route: 048
     Dates: start: 20250611
  2. ITOVEBI [Suspect]
     Active Substance: INAVOLISIB

REACTIONS (4)
  - Nausea [None]
  - Diarrhoea [None]
  - Blood potassium increased [None]
  - Therapy interrupted [None]
